FAERS Safety Report 22366830 (Version 1)
Quarter: 2023Q2

REPORT INFORMATION
  Report Type: Spontaneous
  Country: MA (occurrence: MA)
  Receive Date: 20230525
  Receipt Date: 20230525
  Transmission Date: 20230721
  Serious: Yes (Life-Threatening, Hospitalization)
  Sender: FDA-Public Use
  Company Number: MA-BoehringerIngelheim-2023-BI-239247

PATIENT
  Sex: Male

DRUGS (1)
  1. METALYSE [Suspect]
     Active Substance: TENECTEPLASE
     Indication: Acute myocardial infarction
     Dosage: ( DAILY DOSE-10000 U)
     Route: 065

REACTIONS (1)
  - Treatment failure [Unknown]
